FAERS Safety Report 7088452-2 (Version None)
Quarter: 2010Q4

REPORT INFORMATION
  Report Type: 
  Country: None (occurrence: None)
  Receive Date: 20101108
  Receipt Date: 20101029
  Transmission Date: 20110411
  Serious: Yes (Other)
  Sender: FDA-Public Use
  Company Number: JP-PFIZER INC-2010129187

PATIENT
  Age: 75 Year
  Sex: Male

DRUGS (5)
  1. SELARA [Suspect]
     Indication: HYPERTENSION
     Dosage: 50 MG, 1X/DAY
     Route: 048
     Dates: start: 20100323
  2. SITAGLIPTIN PHOSPHATE [Concomitant]
     Dosage: UNK
     Route: 048
  3. NU LOTAN [Concomitant]
     Dosage: UNK
     Route: 048
  4. LIPITOR [Concomitant]
     Dosage: UNK
     Route: 048
  5. DEPAS [Concomitant]
     Dosage: UNK
     Route: 048

REACTIONS (1)
  - PERICARDIAL EFFUSION [None]
